FAERS Safety Report 15764588 (Version 2)
Quarter: 2019Q2

REPORT INFORMATION
  Report Type: Spontaneous
  Country: JP (occurrence: JP)
  Receive Date: 20181227
  Receipt Date: 20190626
  Transmission Date: 20190711
  Serious: Yes (Hospitalization)
  Sender: FDA-Public Use
  Company Number: JP-SUN PHARMACEUTICAL INDUSTRIES LTD-2018R1-194723

PATIENT
  Age: 16 Year
  Sex: Male

DRUGS (11)
  1. DEXAMETHASONE. [Concomitant]
     Active Substance: DEXAMETHASONE
     Indication: T-CELL TYPE ACUTE LEUKAEMIA
     Route: 065
  2. THP-ADRIAMYCIN [Concomitant]
     Active Substance: PIRARUBICIN
     Indication: T-CELL TYPE ACUTE LEUKAEMIA
     Route: 065
  3. METHOTREXATE. [Suspect]
     Active Substance: METHOTREXATE
     Indication: T-CELL TYPE ACUTE LEUKAEMIA
  4. PREDNISOLONE. [Suspect]
     Active Substance: PREDNISOLONE
     Indication: T-CELL TYPE ACUTE LEUKAEMIA
  5. CYTOSINE ARABINOSIDE [Concomitant]
     Active Substance: CYTARABINE
     Indication: T-CELL TYPE ACUTE LEUKAEMIA
     Route: 065
  6. METHOTREXATE. [Suspect]
     Active Substance: METHOTREXATE
     Indication: CHEMOTHERAPY
     Dosage: UNK
     Route: 065
  7. 6-MERCAPTOPURINE [Concomitant]
     Active Substance: MERCAPTOPURINE
     Indication: T-CELL TYPE ACUTE LEUKAEMIA
     Route: 065
  8. PREDNISOLONE. [Suspect]
     Active Substance: PREDNISOLONE
     Indication: CHEMOTHERAPY
     Dosage: UNK
     Route: 065
  9. VINCRISTINE [Concomitant]
     Active Substance: VINCRISTINE
     Indication: T-CELL TYPE ACUTE LEUKAEMIA
     Route: 065
  10. CYCLOPHOSPHAMIDE. [Concomitant]
     Active Substance: CYCLOPHOSPHAMIDE
     Indication: T-CELL TYPE ACUTE LEUKAEMIA
     Route: 065
  11. L-ASPARAGINASE [Concomitant]
     Active Substance: ASPARAGINASE
     Indication: T-CELL TYPE ACUTE LEUKAEMIA
     Route: 065

REACTIONS (1)
  - Myelopathy [Not Recovered/Not Resolved]
